FAERS Safety Report 7169826-8 (Version None)
Quarter: 2010Q4

REPORT INFORMATION
  Report Type: 
  Country: None (occurrence: None)
  Receive Date: 20101217
  Receipt Date: 20101203
  Transmission Date: 20110411
  Serious: Yes (Other)
  Sender: FDA-Public Use
  Company Number: PHHY2009CA55052

PATIENT
  Sex: Female

DRUGS (6)
  1. SANDOSTATIN [Suspect]
     Dosage: UNK
     Route: 058
  2. SANDOSTATIN LAR [Suspect]
     Indication: POST GASTRIC SURGERY SYNDROME
     Dosage: 20 MG, QMO
     Route: 030
     Dates: start: 20091215
  3. SANDOSTATIN LAR [Suspect]
     Dosage: 20 MG, EVERY 4 WEEKS
     Route: 030
  4. SANDOSTATIN LAR [Suspect]
     Dosage: 20 MG, QMO
     Route: 030
  5. SANDOSTATIN LAR [Suspect]
     Dosage: 20 MG, EVERY 4 WEEKS
     Route: 030
     Dates: start: 20100712
  6. SANDOSTATIN LAR [Suspect]
     Dosage: 20 MG, QMO
     Route: 030

REACTIONS (12)
  - BLOOD GLUCOSE ABNORMAL [None]
  - BRONCHITIS [None]
  - DIARRHOEA [None]
  - HAEMORRHOIDS [None]
  - HEADACHE [None]
  - HYPOGLYCAEMIA [None]
  - MUSCULOSKELETAL PAIN [None]
  - PAIN IN EXTREMITY [None]
  - PRURITUS [None]
  - SCIATICA [None]
  - SINUSITIS [None]
  - VOMITING [None]
